FAERS Safety Report 8833383 (Version 2)
Quarter: 2012Q4

REPORT INFORMATION
  Report Type: 
  Country: DE (occurrence: DE)
  Receive Date: 20121010
  Receipt Date: 20121024
  Transmission Date: 20130627
  Serious: Yes (Hospitalization)
  Sender: FDA-Public Use
  Company Number: DE-JNJFOC-20121001710

PATIENT
  Age: 54 Year
  Sex: Female

DRUGS (1)
  1. SIMPONI [Suspect]
     Indication: POLYARTHRITIS
     Route: 058
     Dates: start: 20120421

REACTIONS (2)
  - Glaucoma [Recovering/Resolving]
  - Iritis [Recovering/Resolving]
